FAERS Safety Report 6542814-8 (Version None)
Quarter: 2010Q1

REPORT INFORMATION
  Report Type: 
  Country: None (occurrence: None)
  Receive Date: 20100114
  Receipt Date: 20091229
  Transmission Date: 20100710
  Serious: Yes (Hospitalization, Congenital Anomaly)
  Sender: FDA-Public Use
  Company Number: 1000010428

PATIENT
  Weight: 2.78 kg

DRUGS (4)
  1. LEXAPRO [Suspect]
     Dosage: TRANSPLACENTAL
     Route: 064
  2. ATACAND [Concomitant]
  3. ELEVIT VITAMINS [Concomitant]
  4. INSULIN [Concomitant]

REACTIONS (7)
  - AMNIOTIC FLUID VOLUME DECREASED [None]
  - CONGENITAL BLADDER ANOMALY [None]
  - FOETAL DISORDER [None]
  - MATERNAL DRUGS AFFECTING FOETUS [None]
  - NEONATAL DISORDER [None]
  - NEPHROLITHIASIS [None]
  - RENAL FAILURE [None]
